FAERS Safety Report 12155371 (Version 2)
Quarter: 2016Q2

REPORT INFORMATION
  Report Type: Report from Study
  Country: BR (occurrence: BR)
  Receive Date: 20160307
  Receipt Date: 20160401
  Transmission Date: 20160815
  Serious: Yes (Death, Hospitalization)
  Sender: FDA-Public Use
  Company Number: BR-ABBVIE-16K-020-1574734-00

PATIENT
  Age: 59 Year
  Sex: Male
  Weight: 90 kg

DRUGS (1)
  1. HUMIRA [Suspect]
     Active Substance: ADALIMUMAB
     Indication: PSORIASIS
     Route: 058
     Dates: start: 20150626

REACTIONS (8)
  - Constipation [Unknown]
  - Hyperhidrosis [Unknown]
  - Vomiting [Unknown]
  - Dysentery [Unknown]
  - Abdominal distension [Unknown]
  - Coma [Fatal]
  - Infection [Fatal]
  - Viral infection [Unknown]

NARRATIVE: CASE EVENT DATE: 20160209
